FAERS Safety Report 10555524 (Version 1)
Quarter: 2014Q4

REPORT INFORMATION
  Report Type: Spontaneous
  Country: US (occurrence: US)
  Receive Date: 20141030
  Receipt Date: 20141030
  Transmission Date: 20150529
  Serious: No
  Sender: FDA-Public Use
  Company Number: US-ENDO PHARMACEUTICALS INC.-MODA20140005

PATIENT
  Age: 74 Year
  Sex: Male

DRUGS (2)
  1. MODAFINIL TABLETS 100MG [Suspect]
     Active Substance: MODAFINIL
     Indication: FATIGUE
     Route: 048
     Dates: start: 20140610, end: 20140716
  2. MODAFINIL TABLETS 100MG [Suspect]
     Active Substance: MODAFINIL
     Indication: LETHARGY

REACTIONS (1)
  - Hallucination [Recovering/Resolving]

NARRATIVE: CASE EVENT DATE: 201406
